FAERS Safety Report 7542818-2 (Version None)
Quarter: 2011Q2

REPORT INFORMATION
  Report Type: 
  Country: None (occurrence: None)
  Receive Date: 20110613
  Receipt Date: 20110609
  Transmission Date: 20111010
  Serious: Yes (Other)
  Sender: FDA-Public Use
  Company Number: FR-PFIZER INC-2011126911

PATIENT
  Age: 85 Year
  Sex: Male

DRUGS (11)
  1. BISOPROLOL FUMARATE [Concomitant]
  2. NITROGLYCERIN [Concomitant]
  3. EZETIMIBE/SIMVASTATIN [Concomitant]
  4. PLAVIX [Concomitant]
  5. XANAX [Suspect]
     Dosage: 2 DF, 1X/DAY
  6. MEPRONIZINE [Concomitant]
  7. ICAZ [Concomitant]
  8. IVABRADINE [Concomitant]
  9. ASPIRIN [Concomitant]
  10. LEVOTHYROXINE SODIUM [Concomitant]
  11. PERMIXON [Concomitant]

REACTIONS (15)
  - PRURITUS [None]
  - MUSCULAR WEAKNESS [None]
  - HEADACHE [None]
  - FALL [None]
  - ARTERIAL STENOSIS [None]
  - RESPIRATORY FAILURE [None]
  - SOMNOLENCE [None]
  - ANGINA PECTORIS [None]
  - IRRITABILITY [None]
  - MYALGIA [None]
  - PERIPHERAL ARTERIAL OCCLUSIVE DISEASE [None]
  - HALLUCINATION [None]
  - EYE PRURITUS [None]
  - PHOTOPHOBIA [None]
  - SENSORY DISTURBANCE [None]
